FAERS Safety Report 4284546-5 (Version None)
Quarter: 2004Q1

REPORT INFORMATION
  Report Type: 
  Country: None (occurrence: None)
  Receive Date: 20040130
  Receipt Date: 20040114
  Transmission Date: 20041129
  Serious: Yes (Hospitalization)
  Sender: FDA-Public Use
  Company Number: USA040156551

PATIENT
  Age: 83 Year
  Sex: Female

DRUGS (12)
  1. FORTEO [Suspect]
     Indication: OSTEOPOROSIS
     Dosage: 20 MCG/DAY
     Dates: start: 20031205, end: 20031218
  2. COUMADIN [Concomitant]
  3. LIPITOR [Concomitant]
  4. BETAPACE [Concomitant]
  5. LOPRESSOR [Concomitant]
  6. PREDNISONE [Concomitant]
  7. AMBIEN [Concomitant]
  8. FLORINEF (FLUDOCORTISONE ACETATE) [Concomitant]
  9. DURAEGSIC (FENTANYL) [Concomitant]
  10. SYNTHROID [Concomitant]
  11. CALTRATE (CALCIUM CARBONATE) [Concomitant]
  12. PREVACID [Concomitant]

REACTIONS (4)
  - BLOOD PRESSURE SYSTOLIC INCREASED [None]
  - FALL [None]
  - HYPOTENSION [None]
  - URINARY TRACT INFECTION [None]
